FAERS Safety Report 23230704 (Version 1)
Quarter: 2023Q4

REPORT INFORMATION
  Report Type: Spontaneous
  Country: US (occurrence: None)
  Receive Date: 20231125
  Receipt Date: 20231125
  Transmission Date: 20240110
  Serious: Yes (Death, Hospitalization)
  Sender: FDA-Public Use
  Company Number: None

PATIENT
  Age: 73 Year
  Sex: Female
  Weight: 55 kg

DRUGS (2)
  1. GEMCITABINE HYDROCHLORIDE [Suspect]
     Active Substance: GEMCITABINE HYDROCHLORIDE
     Dates: end: 20231103
  2. PACLITAXEL [Suspect]
     Active Substance: PACLITAXEL
     Dates: end: 20231103

REACTIONS (3)
  - Unresponsive to stimuli [None]
  - Cerebrovascular accident [None]
  - Hospice care [None]

NARRATIVE: CASE EVENT DATE: 20231108
